FAERS Safety Report 6538270-6 (Version None)
Quarter: 2010Q1

REPORT INFORMATION
  Report Type: 
  Country: None (occurrence: None)
  Receive Date: 20100114
  Receipt Date: 20100104
  Transmission Date: 20100710
  Serious: Yes (Hospitalization)
  Sender: FDA-Public Use
  Company Number: CN-BAXTER-2010BH000361

PATIENT
  Age: 64 Year
  Sex: Female

DRUGS (1)
  1. DIANEAL [Suspect]
     Indication: AZOTAEMIA
     Route: 033
     Dates: start: 20060101

REACTIONS (3)
  - ANAEMIA [None]
  - CARDIAC DISORDER [None]
  - PERITONITIS [None]
